FAERS Safety Report 8928938 (Version 1)
Quarter: 2012Q4

REPORT INFORMATION
  Report Type: 
  Country: FR (occurrence: FR)
  Receive Date: 20121128
  Receipt Date: 20121128
  Transmission Date: 20130627
  Serious: Yes (Life-Threatening, Hospitalization)
  Sender: FDA-Public Use
  Company Number: FR-BRISTOL-MYERS SQUIBB COMPANY-17140989

PATIENT
  Age: 54 Year
  Sex: Female

DRUGS (4)
  1. APROVEL TABS [Suspect]
     Route: 048
     Dates: end: 20121017
  2. CRESTOR [Suspect]
     Dates: end: 20121017
  3. LEVOTHYROX [Suspect]
     Dates: end: 20121017
  4. METRONIDAZOLE\SPIRAMYCIN [Suspect]
     Indication: PROPHYLAXIS
     Dosage: 1 df= 1.5 M IU / 250 mg tablet,16Oct12-17Oct12: Bi-Missilor,Mylan:01Oct12-16Oct12
     Dates: start: 20121001

REACTIONS (1)
  - Anaphylactic shock [Recovered/Resolved]
